FAERS Safety Report 20119494 (Version 3)
Quarter: 2022Q4

REPORT INFORMATION
  Report Type: Report from Study
  Country: CA (occurrence: CA)
  Receive Date: 20211126
  Receipt Date: 20221226
  Transmission Date: 20230113
  Serious: Yes (Other)
  Sender: FDA-Public Use
  Company Number: CA-NOVARTISPH-NVSC2020CA350107

PATIENT
  Age: 59 Year
  Sex: Male

DRUGS (8)
  1. RITUXIMAB [Suspect]
     Active Substance: RITUXIMAB
     Indication: Immune-mediated myositis
     Dosage: UNK
     Route: 065
  2. RITUXIMAB [Suspect]
     Active Substance: RITUXIMAB
     Dosage: UNK
     Route: 065
  3. RITUXIMAB [Suspect]
     Active Substance: RITUXIMAB
     Dosage: 1 G
     Route: 042
  4. METHOTREXATE [Suspect]
     Active Substance: METHOTREXATE
     Indication: Immune-mediated myositis
     Dosage: 25 MG, QW
     Route: 048
  5. ACETAMINOPHEN [Concomitant]
     Active Substance: ACETAMINOPHEN
     Indication: Product used for unknown indication
     Dosage: 650 MG
     Route: 048
  6. DIPHENHYDRAMINE [Concomitant]
     Active Substance: DIPHENHYDRAMINE
     Indication: Product used for unknown indication
     Dosage: 50 MG
     Route: 048
  7. PREDNISONE [Concomitant]
     Active Substance: PREDNISONE
     Indication: Product used for unknown indication
     Dosage: 20 MG, QD
     Route: 065
  8. PRIVIGEN [Concomitant]
     Active Substance: HUMAN IMMUNOGLOBULIN G
     Indication: Product used for unknown indication
     Dosage: UNK
     Route: 042

REACTIONS (11)
  - Consciousness fluctuating [Recovered/Resolved]
  - Hypoxia [Recovered/Resolved]
  - Hepatic enzyme increased [Unknown]
  - Infusion related reaction [Recovered/Resolved]
  - Muscle tightness [Recovered/Resolved]
  - Skin discolouration [Recovered/Resolved]
  - Wheezing [Recovered/Resolved]
  - Pallor [Recovered/Resolved]
  - Hypertension [Recovered/Resolved]
  - Treatment failure [Recovering/Resolving]
  - Off label use [Unknown]
